FAERS Safety Report 8411701-2 (Version None)
Quarter: 2012Q2

REPORT INFORMATION
  Report Type: 
  Country: None (occurrence: None)
  Receive Date: 20120531
  Receipt Date: 20120531
  Transmission Date: 20120825
  Serious: Yes (Hospitalization)
  Sender: FDA-Public Use
  Company Number: None

PATIENT
  Sex: Female
  Weight: 61.2356 kg

DRUGS (1)
  1. ARAVA [Suspect]
     Indication: RHEUMATOID ARTHRITIS
     Dosage: 1 PILL ONCE A DAY 02-09-12 2 PILLS A DAY 02-16-*12
     Dates: start: 20120209, end: 20120509

REACTIONS (4)
  - CHEST PAIN [None]
  - DIZZINESS [None]
  - BLOOD PRESSURE INCREASED [None]
  - HEADACHE [None]
